FAERS Safety Report 22321080 (Version 2)
Quarter: 2023Q2

REPORT INFORMATION
  Report Type: Spontaneous
  Country: US (occurrence: US)
  Receive Date: 20230515
  Receipt Date: 20230605
  Transmission Date: 20230722
  Serious: Yes (Other)
  Sender: FDA-Public Use
  Company Number: US-UPSHER-SMITH LABORATORIES, LLC-2023USL00476

PATIENT
  Sex: Female
  Weight: 51.247 kg

DRUGS (5)
  1. MYORISAN [Suspect]
     Active Substance: ISOTRETINOIN
     Indication: Acne
     Dosage: UNK
     Route: 048
     Dates: start: 20220916
  2. MYORISAN [Suspect]
     Active Substance: ISOTRETINOIN
     Indication: Acne
     Dosage: 30 MG, 1X/DAY AT QHS (BEDTIME) IN CONJUCTION WITH 20 MG 1X/DAY IN THE AM.
     Route: 048
     Dates: start: 20221118, end: 20230123
  3. MYORISAN [Suspect]
     Active Substance: ISOTRETINOIN
     Dosage: 30 MG, 2X/DAY
     Route: 048
     Dates: start: 20230124, end: 20230215
  4. ZENATANE [Suspect]
     Active Substance: ISOTRETINOIN
     Indication: Acne
     Dosage: UNK
     Route: 048
     Dates: start: 20221014, end: 20221117
  5. ZENATANE [Suspect]
     Active Substance: ISOTRETINOIN
     Dosage: 20 MG, 1X/DAY IN THE AM IN CONJUNCTION WITH  30 MG AT QHS (BEDTIME)
     Route: 048
     Dates: start: 20221118, end: 20230123

REACTIONS (3)
  - Anxiety [Recovering/Resolving]
  - Panic attack [Recovered/Resolved]
  - Depression [Recovering/Resolving]
